FAERS Safety Report 9859210 (Version 3)
Quarter: 2014Q3

REPORT INFORMATION
  Report Type: Report from Study
  Country: CA (occurrence: CA)
  Receive Date: 20140131
  Receipt Date: 20140811
  Transmission Date: 20150326
  Serious: Yes (Other)
  Sender: FDA-Public Use
  Company Number: CA-BRISTOL-MYERS SQUIBB COMPANY-14431423

PATIENT
  Age: 42 Year
  Sex: Male
  Weight: 70 kg

DRUGS (6)
  1. FOLIC ACID. [Concomitant]
     Active Substance: FOLIC ACID
  2. ORENCIA [Suspect]
     Active Substance: ABATACEPT
     Indication: RHEUMATOID ARTHRITIS
     Dosage: 20N8,16D8,10MR9,13JL,12AG,9SP,4NV9,2DC10,24FB,12MY,29JL1,8OT11,INF:23?1A70931;OT132D73510 3H65580
     Route: 042
     Dates: start: 20081106
  3. HYDROXYCHLOROQUINE [Concomitant]
     Active Substance: HYDROXYCHLOROQUINE
  4. HYDROXYZINE [Concomitant]
     Active Substance: HYDROXYZINE\HYDROXYZINE HYDROCHLORIDE
  5. LEFLUNOMIDE. [Concomitant]
     Active Substance: LEFLUNOMIDE
     Dosage: NOVO-LEFLUNOMIDE
  6. CELEBREX [Concomitant]
     Active Substance: CELECOXIB

REACTIONS (16)
  - Cough [Not Recovered/Not Resolved]
  - Headache [Recovered/Resolved]
  - Nausea [Unknown]
  - Fatigue [Unknown]
  - Nasal dryness [Unknown]
  - Swelling face [Recovered/Resolved]
  - Stomatitis [Unknown]
  - Musculoskeletal stiffness [Unknown]
  - Haemorrhoids [Unknown]
  - Visual acuity reduced [Unknown]
  - Mouth ulceration [Not Recovered/Not Resolved]
  - Swelling [Recovering/Resolving]
  - Melaena [Unknown]
  - Nasal congestion [Recovered/Resolved]
  - Oropharyngeal pain [Unknown]
  - Skin discolouration [Recovering/Resolving]

NARRATIVE: CASE EVENT DATE: 20081126
